FAERS Safety Report 9522617 (Version 4)
Quarter: 2013Q4

REPORT INFORMATION
  Report Type: Report from Study
  Country: CA (occurrence: CA)
  Receive Date: 20130913
  Receipt Date: 20131022
  Transmission Date: 20140711
  Serious: Yes (Hospitalization)
  Sender: FDA-Public Use
  Company Number: CA-ROCHE-1214167

PATIENT
  Age: 36 Year
  Sex: Female
  Weight: 74 kg

DRUGS (7)
  1. AVASTIN [Suspect]
     Indication: GLIOBLASTOMA
     Route: 042
     Dates: start: 20130409, end: 20130924
  2. AVASTIN [Suspect]
     Route: 042
     Dates: start: 20130730, end: 20131007
  3. AVASTIN [Suspect]
     Route: 042
     Dates: start: 20130924
  4. FLONASE [Concomitant]
  5. REACTINE (CANADA) [Concomitant]
  6. SUDAFED [Concomitant]
  7. OMEGA 3 [Concomitant]

REACTIONS (11)
  - Balance disorder [Unknown]
  - Nausea [Unknown]
  - Musculoskeletal stiffness [Unknown]
  - Blood pressure increased [Unknown]
  - Body temperature increased [Recovered/Resolved]
  - Chills [Recovered/Resolved]
  - Mean cell volume increased [Unknown]
  - Mean cell haemoglobin increased [Unknown]
  - Lymphocyte count decreased [Unknown]
  - Heart rate increased [Recovering/Resolving]
  - Platelet count decreased [Unknown]
